FAERS Safety Report 11032487 (Version 1)
Quarter: 2015Q2

REPORT INFORMATION
  Report Type: Spontaneous
  Country: US (occurrence: None)
  Receive Date: 20150414
  Receipt Date: 20150414
  Transmission Date: 20150821
  Serious: Yes (Other)
  Sender: FDA-Public Use
  Company Number: 001895941A

PATIENT
  Age: 51 Year
  Sex: Female

DRUGS (6)
  1. PROACTIV PLUS COMPLEXION PERFECTING HYDRATOR [Suspect]
     Active Substance: SALICYLIC ACID
     Indication: ACNE
     Dosage: DERMAL
     Dates: start: 20150313, end: 20150314
  2. LANTUS [Concomitant]
     Active Substance: INSULIN GLARGINE
  3. PROACTIVPLUS SKIN SMOOTHING EXFOLIATOR [Suspect]
     Active Substance: BENZOYL PEROXIDE
     Indication: ACNE
     Dosage: DERMAL
     Dates: start: 20150313, end: 20150314
  4. PROACTIV PLUS PORE TARGETING TREATMENT [Suspect]
     Active Substance: BENZOYL PEROXIDE
     Indication: ACNE
     Dosage: DERMAL
     Dates: start: 20150313, end: 20150314
  5. PROACTIV PLUS SKIN PURIFYING MASK [Suspect]
     Active Substance: SULFUR
     Dosage: DERMAL
     Dates: start: 20150313, end: 20150314
  6. PROACTIV SOLUTION BLACKHEAD DISSOLVING [Suspect]
     Active Substance: SALICYLIC ACID
     Indication: ACNE
     Dosage: DERMAL
     Dates: start: 20150313, end: 20150314

REACTIONS (12)
  - Dysphagia [None]
  - Pruritus [None]
  - Product formulation issue [None]
  - Burning sensation [None]
  - Skin exfoliation [None]
  - Dyspnoea [None]
  - Local swelling [None]
  - Urticaria [None]
  - Nasal congestion [None]
  - Lacrimation increased [None]
  - Pharyngeal oedema [None]
  - Drug hypersensitivity [None]

NARRATIVE: CASE EVENT DATE: 20150314
